APPROVED DRUG PRODUCT: VERAPAMIL HYDROCHLORIDE
Active Ingredient: VERAPAMIL HYDROCHLORIDE
Strength: 180MG
Dosage Form/Route: TABLET, EXTENDED RELEASE;ORAL
Application: A200878 | Product #002
Applicant: APOTEX CORP
Approved: Apr 20, 2012 | RLD: No | RS: No | Type: DISCN